FAERS Safety Report 18446806 (Version 1)
Quarter: 2020Q4

REPORT INFORMATION
  Report Type: Spontaneous
  Country: FR (occurrence: FR)
  Receive Date: 20201030
  Receipt Date: 20201030
  Transmission Date: 20210114
  Serious: Yes (Other)
  Sender: FDA-Public Use
  Company Number: FR-009507513-2010FRA010048

PATIENT
  Age: 27 Year
  Sex: Female
  Weight: 67 kg

DRUGS (1)
  1. DIPROSONE [Suspect]
     Active Substance: BETAMETHASONE DIPROPIONATE
     Indication: ECZEMA
     Dosage: 1 DOSAGE FORM, QD
     Route: 003
     Dates: end: 20190929

REACTIONS (2)
  - Withdrawal syndrome [Recovering/Resolving]
  - Drug eruption [Recovering/Resolving]

NARRATIVE: CASE EVENT DATE: 2019
